FAERS Safety Report 24538267 (Version 1)
Quarter: 2024Q4

REPORT INFORMATION
  Report Type: Report from Study
  Country: US (occurrence: US)
  Receive Date: 20241023
  Receipt Date: 20241023
  Transmission Date: 20250114
  Serious: Yes (Hospitalization)
  Sender: ABBVIE
  Company Number: US-ABBVIE-5966555

PATIENT
  Age: 56 Year
  Sex: Female
  Weight: 156.94 kg

DRUGS (3)
  1. HUMIRA [Suspect]
     Active Substance: ADALIMUMAB
     Indication: Colitis ulcerative
     Route: 058
     Dates: start: 20200430, end: 20240911
  2. LISINOPRIL [Concomitant]
     Active Substance: LISINOPRIL
     Indication: Hypertension
  3. METOPROLOL [Concomitant]
     Active Substance: METOPROLOL
     Indication: Hypertension

REACTIONS (10)
  - Sialoadenitis [Recovered/Resolved]
  - Haematochezia [Recovering/Resolving]
  - Pharyngitis [Unknown]
  - Drug specific antibody present [Not Recovered/Not Resolved]
  - Blood glucose increased [Recovered/Resolved]
  - Salivary gland calculus [Recovered/Resolved]
  - Tooth fracture [Not Recovered/Not Resolved]
  - Obstructive airways disorder [Recovered/Resolved]
  - Drug ineffective [Not Recovered/Not Resolved]
  - Diarrhoea [Not Recovered/Not Resolved]

NARRATIVE: CASE EVENT DATE: 20240601
